FAERS Safety Report 9464843 (Version 1)
Quarter: 2013Q3

REPORT INFORMATION
  Report Type: Spontaneous
  Country: US (occurrence: US)
  Receive Date: 20130819
  Receipt Date: 20130819
  Transmission Date: 20140515
  Serious: No
  Sender: FDA-Public Use
  Company Number: US-PFIZER INC-2013235299

PATIENT
  Age: 74 Year
  Sex: Female

DRUGS (8)
  1. SUTENT [Suspect]
     Indication: PANCREATIC CARCINOMA
     Dosage: 12.5 MG, UNK
     Dates: start: 20130104
  2. FUROSEMIDE [Concomitant]
     Dosage: UNK
  3. METOPROLOL TARTRATE [Concomitant]
     Dosage: UNK
  4. POTASSIUM [Concomitant]
     Dosage: UNK
  5. REVATIO [Concomitant]
     Dosage: UNK
  6. TYLENOL 8 HOUR [Concomitant]
     Dosage: UNK
  7. WARFARIN SODIUM [Concomitant]
     Dosage: UNK
  8. CALCIUM+ D [Concomitant]
     Dosage: UNK

REACTIONS (1)
  - Bacterial infection [Unknown]
